FAERS Safety Report 16079091 (Version 2)
Quarter: 2019Q2

REPORT INFORMATION
  Report Type: Spontaneous
  Country: US (occurrence: US)
  Receive Date: 20190315
  Receipt Date: 20190402
  Transmission Date: 20190711
  Serious: Yes (Other)
  Sender: FDA-Public Use
  Company Number: US-ASTRAZENECA-2019SE38789

PATIENT
  Age: 24967 Day
  Sex: Female
  Weight: 68.9 kg

DRUGS (30)
  1. ENJUVIA [Concomitant]
     Active Substance: ESTROGENS, CONJUGATED SYNTHETIC B
  2. SUCRALFATE. [Concomitant]
     Active Substance: SUCRALFATE
  3. TIZANIDINE. [Concomitant]
     Active Substance: TIZANIDINE
  4. NASONEX [Concomitant]
     Active Substance: MOMETASONE FUROATE
  5. WARFARIN SODIUM. [Concomitant]
     Active Substance: WARFARIN SODIUM
  6. NEXIUM [Suspect]
     Active Substance: ESOMEPRAZOLE MAGNESIUM
     Indication: GASTROOESOPHAGEAL REFLUX DISEASE
     Route: 048
     Dates: start: 1996, end: 2016
  7. NEXIUM [Suspect]
     Active Substance: ESOMEPRAZOLE MAGNESIUM
     Indication: GASTROOESOPHAGEAL REFLUX DISEASE
     Route: 048
     Dates: start: 2003, end: 2015
  8. FAMOTIDINE. [Concomitant]
     Active Substance: FAMOTIDINE
  9. ROLAIDS [Concomitant]
     Active Substance: CALCIUM CARBONATE\MAGNESIUM HYDROXIDE
  10. DIFLUNISAL. [Concomitant]
     Active Substance: DIFLUNISAL
  11. VESICARE [Concomitant]
     Active Substance: SOLIFENACIN SUCCINATE
  12. LISINOPRIL. [Concomitant]
     Active Substance: LISINOPRIL
  13. NITROFURANTOIN. [Concomitant]
     Active Substance: NITROFURANTOIN
  14. VENLAFAXINE [Concomitant]
     Active Substance: VENLAFAXINE HYDROCHLORIDE
  15. PRILOSEC [Suspect]
     Active Substance: OMEPRAZOLE MAGNESIUM
     Indication: GASTROOESOPHAGEAL REFLUX DISEASE
     Route: 048
     Dates: start: 1999, end: 2000
  16. ATENOLOL. [Concomitant]
     Active Substance: ATENOLOL
  17. KLOR-CON [Concomitant]
     Active Substance: POTASSIUM CHLORIDE
  18. AMLODIPINE BESYLATE. [Concomitant]
     Active Substance: AMLODIPINE BESYLATE
  19. PRILOSEC [Suspect]
     Active Substance: OMEPRAZOLE MAGNESIUM
     Indication: GASTROOESOPHAGEAL REFLUX DISEASE
     Route: 048
     Dates: start: 1996, end: 2016
  20. CALCIUM CARBONATE. [Concomitant]
     Active Substance: CALCIUM CARBONATE
  21. MAGNESIUM HYDROXIDE. [Concomitant]
     Active Substance: MAGNESIUM HYDROXIDE
  22. FLUCONAZOLE. [Concomitant]
     Active Substance: FLUCONAZOLE
  23. PHENAZOPYRIDINE. [Concomitant]
     Active Substance: PHENAZOPYRIDINE
  24. FERREX [Concomitant]
     Active Substance: FERRIC POLYSACCHARIDE COMPLEX
  25. FENTANYL. [Concomitant]
     Active Substance: FENTANYL
  26. CYMBALTA [Concomitant]
     Active Substance: DULOXETINE HYDROCHLORIDE
  27. METHYLPREDNISOLONE. [Concomitant]
     Active Substance: METHYLPREDNISOLONE
  28. CRESTOR [Concomitant]
     Active Substance: ROSUVASTATIN CALCIUM
  29. CIPROFLOXACIN. [Concomitant]
     Active Substance: CIPROFLOXACIN
  30. AMITRIPTYLINE [Concomitant]
     Active Substance: AMITRIPTYLINE

REACTIONS (1)
  - Chronic kidney disease [Not Recovered/Not Resolved]

NARRATIVE: CASE EVENT DATE: 20140218
